FAERS Safety Report 21495794 (Version 7)
Quarter: 2023Q1

REPORT INFORMATION
  Report Type: Spontaneous
  Country: CA (occurrence: CA)
  Receive Date: 20221022
  Receipt Date: 20230103
  Transmission Date: 20230417
  Serious: Yes (Death, Hospitalization, Other)
  Sender: FDA-Public Use
  Company Number: CA-UNITED THERAPEUTICS-UNT-2022-023718

PATIENT
  Sex: Female

DRUGS (3)
  1. REMODULIN [Suspect]
     Active Substance: TREPROSTINIL
     Indication: Pulmonary arterial hypertension
     Dosage: UNK, CONTINUING
     Route: 058
     Dates: start: 20210429, end: 20221222
  2. REMODULIN [Suspect]
     Active Substance: TREPROSTINIL
     Dosage: 0.141 ?G/KG, CONTINUING
     Route: 058
  3. REMODULIN [Suspect]
     Active Substance: TREPROSTINIL
     Dosage: UNK, CONTINUING (RESTART)
     Route: 058
     Dates: start: 20221222

REACTIONS (17)
  - General physical health deterioration [Fatal]
  - Pleural effusion [Not Recovered/Not Resolved]
  - Pericardial effusion [Unknown]
  - Peripheral swelling [Unknown]
  - Abdominal distension [Unknown]
  - Asthenia [Not Recovered/Not Resolved]
  - Diarrhoea [Not Recovered/Not Resolved]
  - Infusion site erythema [Not Recovered/Not Resolved]
  - Device failure [Recovered/Resolved]
  - Cough [Unknown]
  - Secretion discharge [Unknown]
  - Malaise [Not Recovered/Not Resolved]
  - Subcutaneous drug absorption impaired [Recovered/Resolved]
  - Device failure [Recovered/Resolved]
  - Pain [Unknown]
  - Weight decreased [Unknown]
  - Infusion site swelling [Unknown]

NARRATIVE: CASE EVENT DATE: 20220101
